FAERS Safety Report 9642738 (Version 1)
Quarter: 2013Q4

REPORT INFORMATION
  Report Type: Spontaneous
  Country: US (occurrence: US)
  Receive Date: 20131024
  Receipt Date: 20131024
  Transmission Date: 20140711
  Serious: Yes (Hospitalization)
  Sender: FDA-Public Use
  Company Number: US-SA-2013SA105944

PATIENT
  Age: 54 Year
  Sex: Female

DRUGS (2)
  1. LANTUS SOLOSTAR [Suspect]
     Dosage: DOSE:20 UNIT(S)
     Route: 051
  2. SOLOSTAR [Concomitant]

REACTIONS (2)
  - Diverticulitis [Recovered/Resolved]
  - Incorrect product storage [Unknown]
